FAERS Safety Report 7287654-X (Version None)
Quarter: 2011Q1

REPORT INFORMATION
  Report Type: 
  Country: None (occurrence: None)
  Receive Date: 20110208
  Receipt Date: 20110208
  Transmission Date: 20110831
  Serious: Yes (Hospitalization)
  Sender: FDA-Public Use
  Company Number: None

PATIENT
  Sex: Female
  Weight: 59.8 kg

DRUGS (6)
  1. MERCAPTOPURINE [Suspect]
     Dosage: 2700 MG
  2. VINCRISTINE SULFATE [Suspect]
     Dosage: 6 MG
  3. METHOTREXATE [Suspect]
     Dosage: 60 MG
  4. CYTARABINE [Suspect]
     Dosage: 1920 MG
  5. PEG-L-ASPARAGINASE (K-H) [Suspect]
     Dosage: 8000 IU
  6. CYCLOPHOSPHAMIDE [Suspect]
     Dosage: 3180 MG

REACTIONS (32)
  - BLOOD CULTURE POSITIVE [None]
  - BLOOD CREATINE INCREASED [None]
  - DYSPNOEA [None]
  - ASPARTATE AMINOTRANSFERASE INCREASED [None]
  - HAEMOGLOBIN DECREASED [None]
  - PYREXIA [None]
  - LABILE BLOOD PRESSURE [None]
  - BLOOD SODIUM INCREASED [None]
  - CARDIAC ARREST [None]
  - PLATELET COUNT DECREASED [None]
  - BLOOD POTASSIUM INCREASED [None]
  - SEPSIS [None]
  - TACHYPNOEA [None]
  - BLOOD FIBRINOGEN INCREASED [None]
  - KLEBSIELLA INFECTION [None]
  - PULSE PRESSURE DECREASED [None]
  - BLOOD LACTIC ACID INCREASED [None]
  - HEPATIC ISCHAEMIA [None]
  - ALANINE AMINOTRANSFERASE INCREASED [None]
  - ACTIVATED PARTIAL THROMBOPLASTIN TIME PROLONGED [None]
  - ASCITES [None]
  - NEUTROPHIL PERCENTAGE DECREASED [None]
  - SHOCK [None]
  - BRADYCARDIA [None]
  - BLOOD GLUCOSE INCREASED [None]
  - PROTHROMBIN TIME PROLONGED [None]
  - PLEURAL EFFUSION [None]
  - COMPARTMENT SYNDROME [None]
  - ADRENAL HAEMORRHAGE [None]
  - CULTURE URINE POSITIVE [None]
  - ABDOMINAL DISTENSION [None]
  - PNEUMATOSIS [None]
